FAERS Safety Report 8853780 (Version 1)
Quarter: 2012Q4

REPORT INFORMATION
  Report Type: 
  Country: CN (occurrence: CN)
  Receive Date: 20121023
  Receipt Date: 20121023
  Transmission Date: 20130627
  Serious: No
  Sender: FDA-Public Use
  Company Number: CN-ELI_LILLY_AND_COMPANY-CN201210004230

PATIENT
  Age: 56 Year
  Sex: Female

DRUGS (6)
  1. ZYPREXA [Suspect]
     Indication: DEPRESSION
     Dosage: UNK
     Dates: start: 20120427
  2. VENLAFAXINE HYDROCHLORIDE [Concomitant]
     Dosage: UNK UNK, qd
     Dates: start: 20120423
  3. VENLAFAXINE HYDROCHLORIDE [Concomitant]
     Dosage: 150 mg, qd
  4. VENLAFAXINE HYDROCHLORIDE [Concomitant]
     Dosage: 225 mg, qd
  5. ALPRAZOLAM [Concomitant]
     Dosage: UNK
     Dates: start: 20120423
  6. OXIRACETAM [Concomitant]
     Dosage: UNK
     Dates: start: 20120427

REACTIONS (3)
  - White blood cell count decreased [Recovered/Resolved]
  - Neutrophil count decreased [Recovered/Resolved]
  - Off label use [Unknown]
